FAERS Safety Report 5402053-0 (Version None)
Quarter: 2007Q3

REPORT INFORMATION
  Report Type: 
  Country: None (occurrence: None)
  Receive Date: 20070727
  Receipt Date: 20070717
  Transmission Date: 20080115
  Serious: Yes (Hospitalization)
  Sender: FDA-Public Use
  Company Number: 39194

PATIENT
  Age: 73 Year
  Sex: Female

DRUGS (1)
  1. FLOXURIDINE [Suspect]
     Indication: METASTASES TO LUNG

REACTIONS (7)
  - ARTERIOVENOUS MALFORMATION [None]
  - BLOOD ERYTHROPOIETIN INCREASED [None]
  - HAEMATOCRIT INCREASED [None]
  - HAEMOGLOBIN INCREASED [None]
  - MIXED VENOUS BLOOD SATURATION DECREASED [None]
  - OXYGEN SATURATION DECREASED [None]
  - TACHYCARDIA [None]
